FAERS Safety Report 10700574 (Version 1)
Quarter: 2015Q1

REPORT INFORMATION
  Report Type: Spontaneous
  Country: US (occurrence: US)
  Receive Date: 20150109
  Receipt Date: 20150109
  Transmission Date: 20150721
  Serious: Yes (Hospitalization, Other)
  Sender: FDA-Public Use
  Company Number: US-BAUSCH-BL-2015-000140

PATIENT
  Age: 69 Year
  Sex: Female
  Weight: 147 kg

DRUGS (7)
  1. KETOROLAC [Concomitant]
     Active Substance: KETOROLAC\KETOROLAC TROMETHAMINE
     Indication: PRODUCT USED FOR UNKNOWN INDICATION
  2. ONDANSETRON [Concomitant]
     Active Substance: ONDANSETRON
     Indication: PRODUCT USED FOR UNKNOWN INDICATION
  3. ACYCLOVIR. [Suspect]
     Active Substance: ACYCLOVIR
     Route: 042
  4. PREDNISONE. [Concomitant]
     Active Substance: PREDNISONE
     Indication: DIABETES MELLITUS
  5. ACYCLOVIR. [Suspect]
     Active Substance: ACYCLOVIR
     Dosage: ONE DOSE
     Route: 042
  6. ACYCLOVIR. [Suspect]
     Active Substance: ACYCLOVIR
     Indication: HERPES ZOSTER
     Route: 048
  7. PREDNISONE. [Concomitant]
     Active Substance: PREDNISONE
     Indication: ASTHMA

REACTIONS (4)
  - Meningoencephalitis herpetic [Recovered/Resolved]
  - Uraemic encephalopathy [Recovered/Resolved]
  - Toxic encephalopathy [Recovered/Resolved]
  - Renal injury [Recovered/Resolved]
